FAERS Safety Report 4607663-6 (Version None)
Quarter: 2005Q2

REPORT INFORMATION
  Report Type: 
  Country: None (occurrence: None)
  Receive Date: 20050228
  Receipt Date: 20041108
  Transmission Date: 20051028
  Serious: No
  Sender: FDA-Public Use
  Company Number: FABR-10816

PATIENT
  Age: 24 Year
  Sex: Male
  Weight: 57.6068 kg

DRUGS (5)
  1. FABRAZYME [Suspect]
     Indication: FABRY'S DISEASE
     Dosage: 70 MG Q2WKS IV
     Route: 042
     Dates: start: 20040701, end: 20040708
  2. FABRAZYME [Suspect]
     Indication: FABRY'S DISEASE
     Dosage: 55 MG Q2WKS IV
     Route: 042
     Dates: start: 20040708, end: 20041007
  3. BENADRYL [Concomitant]
  4. PREDNISONE [Concomitant]
  5. TYLENOL [Concomitant]

REACTIONS (3)
  - DYSPNOEA [None]
  - ERYTHEMA [None]
  - FEELING HOT [None]
